FAERS Safety Report 4507212-7 (Version None)
Quarter: 2004Q4

REPORT INFORMATION
  Report Type: 
  Country: None (occurrence: None)
  Receive Date: 20041025
  Receipt Date: 20040521
  Transmission Date: 20050328
  Serious: Yes (Hospitalization)
  Sender: FDA-Public Use
  Company Number: US-JNJFOC-20040505546

PATIENT
  Age: 39 Year
  Sex: Female

DRUGS (8)
  1. INFLIXIMAB (INFLIXIMAB, RECOMBINANT) LYOPHILIZED POWDER [Suspect]
     Indication: RHEUMATOID ARTHRITIS
     Dosage: INTRAVENOUS
     Route: 042
     Dates: start: 20000503, end: 20031101
  2. WELLBUTRIN [Concomitant]
  3. FOLIC ACID [Concomitant]
  4. METHOTREXATE [Concomitant]
  5. ULTRAM [Concomitant]
  6. MULTIVITAMIN (MULTIVITAMIN) [Concomitant]
  7. POTASSIUM (POTASSIUM) [Concomitant]
  8. PREDNISONE [Concomitant]

REACTIONS (1)
  - PNEUMONIA [None]
